FAERS Safety Report 4519193-0 (Version None)
Quarter: 2004Q4

REPORT INFORMATION
  Report Type: 
  Country: None (occurrence: None)
  Receive Date: 20041201
  Receipt Date: 20041118
  Transmission Date: 20050328
  Serious: Yes (Death, Hospitalization, Other)
  Sender: FDA-Public Use
  Company Number: 2004096121

PATIENT
  Sex: Male

DRUGS (5)
  1. SERTRALINE HCL [Suspect]
     Dates: end: 20040119
  2. CITALOPRAM [Suspect]
     Indication: DEPRESSION
     Dosage: ORAL
     Route: 048
     Dates: start: 20031201, end: 20041113
  3. PROCYCLIDINE HYDROCHLORIDE 2MG TAB [Suspect]
     Indication: AKINESIA
     Dosage: 10 MG (5 MG  2 IN 1 D
     Dates: start: 20040101, end: 20040119
  4. OXAZEPAM [Suspect]
     Dates: end: 20040119
  5. LEVOTHYROXINE SODIUM [Concomitant]

REACTIONS (16)
  - AKINESIA [None]
  - BRADYKINESIA [None]
  - CATATONIA [None]
  - DELUSION [None]
  - DYSKINESIA [None]
  - DYSPHASIA [None]
  - FREEZING PHENOMENON [None]
  - HEADACHE [None]
  - MUSCLE SPASMS [None]
  - MUSCLE TWITCHING [None]
  - NAUSEA [None]
  - NEUROLOGICAL EXAMINATION ABNORMAL [None]
  - PSYCHOTIC DISORDER [None]
  - ROAD TRAFFIC ACCIDENT [None]
  - SPEECH DISORDER [None]
  - THERAPEUTIC RESPONSE DELAYED [None]
